FAERS Safety Report 10621188 (Version 13)
Quarter: 2017Q3

REPORT INFORMATION
  Report Type: Spontaneous
  Country: CA (occurrence: CA)
  Receive Date: 20141203
  Receipt Date: 20170704
  Transmission Date: 20171127
  Serious: Yes (Other)
  Sender: FDA-Public Use
  Company Number: CA-ROCHE-1499211

PATIENT
  Age: 42 Year
  Sex: Female

DRUGS (13)
  1. ALVESCO [Concomitant]
     Active Substance: CICLESONIDE
     Route: 065
     Dates: start: 201705
  2. LYRICA [Concomitant]
     Active Substance: PREGABALIN
     Indication: PRODUCT USED FOR UNKNOWN INDICATION
     Dosage: PRN
     Route: 065
  3. XOLAIR [Suspect]
     Active Substance: OMALIZUMAB
     Route: 058
     Dates: start: 20160519
  4. SYMBICORT [Concomitant]
     Active Substance: BUDESONIDE\FORMOTEROL FUMARATE DIHYDRATE
     Indication: PRODUCT USED FOR UNKNOWN INDICATION
     Route: 065
  5. SINGULAIR [Concomitant]
     Active Substance: MONTELUKAST SODIUM
     Indication: PRODUCT USED FOR UNKNOWN INDICATION
     Dosage: 10 MG, QD
     Route: 065
  6. PRISTIQ EXTENDED-RELEASE [Concomitant]
     Active Substance: DESVENLAFAXINE SUCCINATE
     Indication: PRODUCT USED FOR UNKNOWN INDICATION
     Route: 065
  7. VENTOLINE [Concomitant]
     Active Substance: ALBUTEROL
     Indication: PRODUCT USED FOR UNKNOWN INDICATION
     Dosage: PRN
     Route: 065
  8. ALVESCO [Concomitant]
     Active Substance: CICLESONIDE
     Indication: PRODUCT USED FOR UNKNOWN INDICATION
     Route: 065
  9. ATROVENT [Concomitant]
     Active Substance: IPRATROPIUM BROMIDE
  10. XOLAIR [Suspect]
     Active Substance: OMALIZUMAB
     Route: 058
     Dates: start: 20150702
  11. XOLAIR [Suspect]
     Active Substance: OMALIZUMAB
     Indication: ASTHMA
     Route: 058
     Dates: start: 20140811
  12. XOLAIR [Suspect]
     Active Substance: OMALIZUMAB
     Route: 058
     Dates: start: 20160630
  13. ATIVAN [Concomitant]
     Active Substance: LORAZEPAM
     Indication: PRODUCT USED FOR UNKNOWN INDICATION
     Route: 065

REACTIONS (40)
  - Arthralgia [Unknown]
  - Wheezing [Unknown]
  - Forced expiratory volume decreased [Unknown]
  - Atelectasis [Unknown]
  - Cough [Unknown]
  - Lower respiratory tract infection [Recovering/Resolving]
  - Pneumonia [Recovered/Resolved]
  - Depression [Not Recovered/Not Resolved]
  - Chronic obstructive pulmonary disease [Unknown]
  - Dizziness [Recovered/Resolved]
  - Respiratory disorder [Unknown]
  - Groin pain [Not Recovered/Not Resolved]
  - Feeling abnormal [Unknown]
  - Respiratory rate increased [Unknown]
  - Coronary artery disease [Unknown]
  - Asthma [Not Recovered/Not Resolved]
  - Peripheral swelling [Recovered/Resolved]
  - Thrombosis [Unknown]
  - Foot deformity [Unknown]
  - Pruritus [Unknown]
  - Bronchitis [Unknown]
  - Palpitations [Unknown]
  - Blood immunoglobulin E increased [Unknown]
  - Restless legs syndrome [Not Recovered/Not Resolved]
  - Pain [Unknown]
  - Respiratory tract congestion [Unknown]
  - Heart rate increased [Unknown]
  - Productive cough [Unknown]
  - Joint swelling [Recovered/Resolved]
  - Myalgia [Unknown]
  - Dysphonia [Unknown]
  - Drug ineffective [Unknown]
  - Haemorrhage [Unknown]
  - Headache [Unknown]
  - Pain in extremity [Unknown]
  - Malaise [Unknown]
  - Obstructive airways disorder [Unknown]
  - Rash [Recovering/Resolving]
  - Fatigue [Unknown]
  - Neck pain [Unknown]

NARRATIVE: CASE EVENT DATE: 20140811
